FAERS Safety Report 7429668-2 (Version None)
Quarter: 2011Q2

REPORT INFORMATION
  Report Type: 
  Country: None (occurrence: None)
  Receive Date: 20110421
  Receipt Date: 20110407
  Transmission Date: 20111010
  Serious: Yes (Death, Hospitalization, Other)
  Sender: FDA-Public Use
  Company Number: JP-JNJFOC-20110408918

PATIENT
  Age: 63 Year
  Sex: Female

DRUGS (26)
  1. CYTARABINE [Suspect]
     Indication: EXTRANODAL NK/T-CELL LYMPHOMA, NASAL TYPE
     Route: 065
  2. CYCLOPHOSPHAMIDE [Suspect]
     Indication: EXTRANODAL NK/T-CELL LYMPHOMA, NASAL TYPE
     Route: 065
  3. PREDNISOLONE [Suspect]
     Indication: EXTRANODAL NK/T-CELL LYMPHOMA, NASAL TYPE
     Route: 065
  4. ITRIZOLE [Concomitant]
     Indication: PROPHYLAXIS
     Route: 048
  5. METHOTREXATE [Suspect]
     Indication: EXTRANODAL NK/T-CELL LYMPHOMA, NASAL TYPE
     Route: 065
  6. MICAFUNGIN [Suspect]
     Route: 065
  7. VANCOMYCIN [Suspect]
     Indication: ANTIBIOTIC RESISTANT STAPHYLOCOCCUS TEST
     Route: 065
  8. ISEPAMICIN [Suspect]
     Indication: PNEUMONIA
     Route: 065
  9. AMPHOTERICIN B [Suspect]
     Indication: ANTIFUNGAL PROPHYLAXIS
     Route: 065
  10. IFOSFAMIDE [Suspect]
     Indication: EXTRANODAL NK/T-CELL LYMPHOMA, NASAL TYPE
     Route: 065
  11. ITRIZOLE [Concomitant]
     Indication: PNEUMONIA
     Route: 048
  12. ITRIZOLE [Concomitant]
     Route: 048
  13. DOXORUBICIN [Suspect]
     Indication: EXTRANODAL NK/T-CELL LYMPHOMA, NASAL TYPE
     Route: 042
  14. AMPHOTERICIN B [Suspect]
     Route: 065
  15. ITRIZOLE [Concomitant]
     Route: 048
  16. MICAFUNGIN [Suspect]
     Route: 065
  17. DEXAMETHASONE [Suspect]
     Indication: EXTRANODAL NK/T-CELL LYMPHOMA, NASAL TYPE
     Route: 065
  18. VINCRISTINE [Suspect]
     Indication: EXTRANODAL NK/T-CELL LYMPHOMA, NASAL TYPE
     Route: 065
  19. ELSPAR [Suspect]
     Indication: EXTRANODAL NK/T-CELL LYMPHOMA, NASAL TYPE
     Route: 065
  20. ETOPOSIDE [Suspect]
     Indication: EXTRANODAL NK/T-CELL LYMPHOMA, NASAL TYPE
     Route: 065
  21. CARBOPLATIN [Suspect]
     Indication: EXTRANODAL NK/T-CELL LYMPHOMA, NASAL TYPE
     Route: 065
  22. MEROPENEM [Suspect]
     Indication: PRODUCT USED FOR UNKNOWN INDICATION
     Route: 065
  23. MICAFUNGIN [Suspect]
     Indication: PNEUMONIA
     Route: 065
  24. POLYGAM S/D [Suspect]
     Indication: PNEUMONIA
     Route: 065
  25. ETOPOSIDE [Suspect]
     Route: 065
  26. IFOSFAMIDE [Suspect]
     Route: 065

REACTIONS (2)
  - PNEUMONIA [None]
  - DRUG INEFFECTIVE [None]
